FAERS Safety Report 4294065-8 (Version None)
Quarter: 2004Q1

REPORT INFORMATION
  Report Type: 
  Country: None (occurrence: None)
  Receive Date: 20040211
  Receipt Date: 20040130
  Transmission Date: 20041129
  Serious: Yes (Hospitalization)
  Sender: FDA-Public Use
  Company Number: OMPQ-NO-0401S-0101

PATIENT
  Age: 50 Year
  Sex: Female

DRUGS (3)
  1. OMNIPAQUE (IOHEXOL) [Suspect]
     Indication: DIARRHOEA
     Dosage: 100 ML, SINGLE DOSE, I.V.
     Route: 042
     Dates: start: 20040120, end: 20040120
  2. BERIZYM [Concomitant]
  3. BIO THREE [Concomitant]

REACTIONS (17)
  - ABDOMINAL PAIN UPPER [None]
  - BACK PAIN [None]
  - BLOOD PRESSURE DECREASED [None]
  - BODY TEMPERATURE INCREASED [None]
  - CHILLS [None]
  - COAGULOPATHY [None]
  - DIARRHOEA [None]
  - HAEMORRHAGE [None]
  - HAEMOTHORAX [None]
  - HEADACHE [None]
  - HEPATIC FUNCTION ABNORMAL [None]
  - NAUSEA [None]
  - OLIGURIA [None]
  - PLATELET COUNT DECREASED [None]
  - PLEURAL HAEMORRHAGE [None]
  - RENAL IMPAIRMENT [None]
  - VOMITING [None]
